FAERS Safety Report 8076491-4 (Version None)
Quarter: 2012Q1

REPORT INFORMATION
  Report Type: 
  Country: None (occurrence: None)
  Receive Date: 20120127
  Receipt Date: 20120120
  Transmission Date: 20120608
  Serious: Yes (Hospitalization)
  Sender: FDA-Public Use
  Company Number: US-GILEAD-2011-0048193

PATIENT
  Sex: Female

DRUGS (6)
  1. RANOLAZINE [Suspect]
     Dosage: 1000 MG, BID
     Route: 048
     Dates: end: 20111215
  2. RANOLAZINE [Suspect]
     Indication: PULMONARY HYPERTENSION
     Dosage: 500 MG, BID
     Route: 048
     Dates: start: 20111101
  3. LISINOPRIL [Concomitant]
     Indication: HYPERTENSION
     Dosage: 40 MG, UNK
     Route: 048
     Dates: start: 20090101
  4. ASPIRIN [Concomitant]
     Indication: CARDIOVASCULAR EVENT PROPHYLAXIS
     Dosage: 81 MG, UNK
     Route: 048
     Dates: start: 20090101
  5. FUROSEMIDE [Concomitant]
     Indication: OEDEMA
     Dosage: 20 MG, UNK
     Route: 048
     Dates: start: 20111017
  6. PRAVASTATIN [Concomitant]
     Indication: HYPERLIPIDAEMIA
     Dosage: 80 MG, UNK
     Route: 048
     Dates: start: 20090101

REACTIONS (2)
  - NODAL RHYTHM [None]
  - BRADYCARDIA [None]
